FAERS Safety Report 22987885 (Version 2)
Quarter: 2023Q4

REPORT INFORMATION
  Report Type: Spontaneous
  Country: US (occurrence: US)
  Receive Date: 20230926
  Receipt Date: 20231215
  Transmission Date: 20240109
  Serious: No
  Sender: FDA-Public Use
  Company Number: US-MYLANLABS-2023M1097493

PATIENT
  Sex: Female
  Weight: 56.7 kg

DRUGS (2)
  1. ESTRADIOL [Suspect]
     Active Substance: ESTRADIOL
     Indication: Menopausal symptoms
     Dosage: UNK (THREE (3) OR FOUR (4) TIMES A WEEK)
     Route: 067
     Dates: start: 202306, end: 202306
  2. ESTRADIOL [Suspect]
     Active Substance: ESTRADIOL
     Dosage: UNK, (2 TIMES A WEEK AND PEA SIZE)
     Route: 067

REACTIONS (4)
  - Feeling abnormal [Recovered/Resolved]
  - Drug ineffective [Recovered/Resolved]
  - Vulvovaginal burning sensation [Recovered/Resolved]
  - Product quality issue [Recovered/Resolved]
